FAERS Safety Report 8841630 (Version 2)
Quarter: 2012Q4

REPORT INFORMATION
  Report Type: 
  Country: DE (occurrence: DE)
  Receive Date: 20121015
  Receipt Date: 20121122
  Transmission Date: 20130627
  Serious: Yes (Other)
  Sender: FDA-Public Use
  Company Number: DE-JNJFOC-20121007681

PATIENT
  Age: 72 Year
  Sex: Male
  Weight: 123 kg

DRUGS (8)
  1. XARELTO [Suspect]
     Indication: EMBOLISM VENOUS
     Route: 048
  2. XARELTO [Suspect]
     Indication: EMBOLISM VENOUS
     Route: 048
     Dates: start: 20120828, end: 20120919
  3. XARELTO [Suspect]
     Indication: DEEP VEIN THROMBOSIS
     Route: 048
     Dates: start: 20120828, end: 20120919
  4. XARELTO [Suspect]
     Indication: DEEP VEIN THROMBOSIS
     Route: 048
  5. HYDROCHLOROTHIAZIDE W/VALSARTAN [Concomitant]
     Route: 065
  6. AMLODIPINE [Concomitant]
     Route: 065
  7. METOPROLOL [Concomitant]
     Route: 065
  8. TAMSULOSIN [Concomitant]
     Route: 065

REACTIONS (3)
  - Thrombosis [Unknown]
  - Deep vein thrombosis [Recovered/Resolved]
  - Drug ineffective [Unknown]
